FAERS Safety Report 6583725-1 (Version None)
Quarter: 2010Q1

REPORT INFORMATION
  Report Type: 
  Country: None (occurrence: None)
  Receive Date: 20100216
  Receipt Date: 20100205
  Transmission Date: 20100710
  Serious: Yes (Life-Threatening, Hospitalization)
  Sender: FDA-Public Use
  Company Number: HK-ROCHE-681375

PATIENT
  Sex: Male
  Weight: 75 kg

DRUGS (6)
  1. MIRCERA [Suspect]
     Route: 065
     Dates: start: 20091113, end: 20091207
  2. MIRCERA [Suspect]
     Route: 065
     Dates: start: 20091207, end: 20100105
  3. SEVELAMER HYDROCHLORIDE [Concomitant]
     Route: 048
  4. ROCALTROL [Concomitant]
     Dosage: FREQUENCY REPORTED AS EVERY NIGHT
     Route: 048
  5. LIPITOR [Concomitant]
     Route: 048
  6. CALCIUM CARBONATE [Concomitant]
     Route: 048

REACTIONS (3)
  - CARDIAC FAILURE CONGESTIVE [None]
  - DRUG INEFFECTIVE [None]
  - HAEMOGLOBIN DECREASED [None]
